FAERS Safety Report 9528201 (Version 1)
Quarter: 2013Q1

REPORT INFORMATION
  Report Type: Spontaneous
  Country: US (occurrence: None)
  Receive Date: 20130314
  Receipt Date: 20130314
  Transmission Date: 20140127
  Serious: No
  Sender: FDA-Public Use
  Company Number: 1208USA001793

PATIENT
  Age: 63 Year
  Sex: Female

DRUGS (24)
  1. PEG-INTRON [Suspect]
     Indication: CHRONIC HEPATITIS C
     Route: 058
  2. VICTRELIS [Suspect]
     Route: 048
  3. RIBAVIRIN [Suspect]
     Indication: CHRONIC HEPATITIS C
  4. RIBASPHERE [Suspect]
  5. ASTELIN (ACELASTINE HYDROCHLORIDE) (ACELASTINE HYDROCHLORIDE) [Concomitant]
  6. LOSARTAN POTASSIUM (LOSARTAN POTASSIUM) [Concomitant]
  7. CLONIDINE (CLONIDINE) [Concomitant]
  8. PREDNISONE (+) THALIDOMIDE )PREDNISONE, THALIDOMIDE) [Concomitant]
  9. ALLEGRA [Concomitant]
  10. ISOSORBIDE (ISOSORBIDE) [Concomitant]
  11. HYDROXYZINE (HYDROXYZINE) [Concomitant]
  12. SYMBICORT [Concomitant]
  13. LEVOTHYROXINE SODIUM (LEVOTHYROXINE SODIUM) [Concomitant]
  14. BYSTOLIC (NEBIVOLOL HYDROCHLORIDE) [Concomitant]
  15. SPIRIVA (TIOTROPIUM BROMIDE) (TIOTROPIUM BROMIDE) [Concomitant]
  16. ESTER-C (CALCIUM ASCORBATE) [Concomitant]
  17. PREVACID [Concomitant]
  18. CALCIUM [Concomitant]
  19. KRILL OIL [Concomitant]
  20. GLUCOSAMINE [Concomitant]
  21. MAGNESIUM [Concomitant]
  22. TYLENOL ARTHRITIS PAIN [Concomitant]
  23. HYDROXYCHLOROQUINE SULFATE [Concomitant]
  24. VITAMINS [Concomitant]

REACTIONS (7)
  - Haematocrit decreased [None]
  - Feeling abnormal [None]
  - Haemoglobin decreased [None]
  - Fatigue [None]
  - Skin infection [None]
  - Urinary tract infection [None]
  - Anaemia [None]
